FAERS Safety Report 21224211 (Version 4)
Quarter: 2023Q1

REPORT INFORMATION
  Report Type: Report from Study
  Country: JP (occurrence: JP)
  Receive Date: 20220817
  Receipt Date: 20230307
  Transmission Date: 20230417
  Serious: Yes (Life-Threatening, Hospitalization, Other)
  Sender: FDA-Public Use
  Company Number: JP-ONO-2022JP000956

PATIENT
  Age: 71 Year
  Sex: Male
  Weight: 75.9 kg

DRUGS (6)
  1. YERVOY [Suspect]
     Active Substance: IPILIMUMAB
     Indication: Non-small cell lung cancer recurrent
     Dosage: 75 MG(1MG/KG), Q6W
     Route: 041
     Dates: start: 20210603, end: 20210603
  2. YERVOY [Suspect]
     Active Substance: IPILIMUMAB
  3. YERVOY [Suspect]
     Active Substance: IPILIMUMAB
  4. OPDIVO [Suspect]
     Active Substance: NIVOLUMAB
     Indication: Non-small cell lung cancer recurrent
     Dosage: 3????
     Route: 041
     Dates: start: 20210603, end: 20210612
  5. OPDIVO [Suspect]
     Active Substance: NIVOLUMAB
  6. METFORMIN HYDROCHLORIDE [Concomitant]
     Active Substance: METFORMIN HYDROCHLORIDE
     Indication: Product used for unknown indication

REACTIONS (1)
  - Limbic encephalitis [Recovered/Resolved with Sequelae]

NARRATIVE: CASE EVENT DATE: 20210710
